FAERS Safety Report 7747821-5 (Version None)
Quarter: 2011Q3

REPORT INFORMATION
  Report Type: 
  Country: None (occurrence: None)
  Receive Date: 20110913
  Receipt Date: 20110906
  Transmission Date: 20111222
  Serious: Yes (Other)
  Sender: FDA-Public Use
  Company Number: US-BAYER-2010-003079

PATIENT
  Age: 18 Year
  Sex: Female
  Weight: 113.38 kg

DRUGS (16)
  1. TRIAMCINOLONE ACETONIDE [Concomitant]
     Dosage: 0.1 %, UNK
  2. ALBUTEROL INHALER [Concomitant]
  3. AMOXICILLIN [Concomitant]
  4. FERROUS SULFATE TAB [Concomitant]
  5. EFFEXOR [Concomitant]
  6. IBUPROFEN [Concomitant]
  7. FLOVENT [Concomitant]
  8. YAZ [Suspect]
     Indication: POLYCYSTIC OVARIES
  9. FLUOCINOLONE ACETONIDE [Concomitant]
     Dosage: 0.025 %, UNK
  10. ZANTAC [Concomitant]
  11. PREVACID [Concomitant]
  12. ZYRTEC [Concomitant]
  13. EPIPEN [Concomitant]
  14. FLONASE [Concomitant]
  15. YAZ [Suspect]
     Indication: ACNE
     Dosage: UNK
     Route: 048
     Dates: start: 20090101, end: 20091001
  16. METFORMIN HCL [Concomitant]

REACTIONS (3)
  - CHOLELITHIASIS [None]
  - CHOLECYSTITIS CHRONIC [None]
  - PAIN [None]
